FAERS Safety Report 7653978-7 (Version None)
Quarter: 2011Q3

REPORT INFORMATION
  Report Type: 
  Country: None (occurrence: None)
  Receive Date: 20110803
  Receipt Date: 20110721
  Transmission Date: 20111222
  Serious: Yes (Hospitalization)
  Sender: FDA-Public Use
  Company Number: US-UCBSA-037510

PATIENT
  Sex: Male
  Weight: 90.8 kg

DRUGS (14)
  1. METOPROLOL TARTRATE [Concomitant]
     Indication: HYPERTENSION
     Dates: start: 20090101
  2. LAMICTAL [Concomitant]
     Dates: start: 20110628, end: 20110707
  3. FERROUS SULFATE TAB [Concomitant]
     Indication: ANAEMIA
     Dates: start: 20090101
  4. FLUOXETINE [Concomitant]
     Indication: DEPRESSION
     Dates: start: 20090101
  5. GLUCOSAMIDE [Concomitant]
     Indication: ARTHRITIS
  6. LAMICTAL [Concomitant]
     Dates: start: 20110715
  7. MULTI-VITAMINS [Concomitant]
     Indication: VITAMIN SUPPLEMENTATION
  8. LAMICTAL [Concomitant]
     Dates: start: 20110602, end: 20110615
  9. TYLENOL-500 [Concomitant]
     Indication: HEADACHE
     Dates: start: 20100901
  10. LAMICTAL [Concomitant]
     Dates: start: 20110615, end: 20110627
  11. LACOSAMIDE [Suspect]
     Indication: PARTIAL SEIZURES
     Route: 048
     Dates: start: 20110505
  12. LAMICTAL [Concomitant]
     Indication: EPILEPSY
     Dates: end: 20110602
  13. FISH OIL [Concomitant]
     Indication: MEDICAL DIET
     Dates: start: 20100101
  14. RANITIDINE [Concomitant]
     Indication: DYSPEPSIA
     Dates: start: 20010101

REACTIONS (1)
  - CONVULSION [None]
